FAERS Safety Report 24055617 (Version 1)
Quarter: 2024Q3

REPORT INFORMATION
  Report Type: Spontaneous
  Country: US (occurrence: None)
  Receive Date: 20240703
  Receipt Date: 20240703
  Transmission Date: 20241017
  Serious: Yes (Hospitalization)
  Sender: Public
  Company Number: None

PATIENT
  Age: 93 Year
  Sex: Male
  Weight: 73 kg

DRUGS (1)
  1. RUXIENCE [Suspect]
     Active Substance: RITUXIMAB-PVVR
     Indication: Prostate cancer

REACTIONS (7)
  - Dizziness [None]
  - Lethargy [None]
  - Pallor [None]
  - Oxygen saturation decreased [None]
  - Infusion related reaction [None]
  - Tremor [None]
  - Blood pressure decreased [None]

NARRATIVE: CASE EVENT DATE: 20240627
